FAERS Safety Report 9170104 (Version 1)
Quarter: 2013Q1

REPORT INFORMATION
  Report Type: Spontaneous
  Country: US (occurrence: None)
  Receive Date: 20130308
  Receipt Date: 20130308
  Transmission Date: 20140127
  Serious: Yes (Hospitalization)
  Sender: FDA-Public Use
  Company Number: JPI-P-030322

PATIENT
  Age: 51 Year
  Sex: Female

DRUGS (10)
  1. XYREM (500 MILLIGRAM/ MILLILITERS, SOLUTION) (SODIUM OXYBATE) [Suspect]
     Indication: NARCOLEPSY
     Dosage: (2.25 GM, 2 IN 1 D)
     Route: 048
     Dates: start: 2009
  2. FLU SHOT [Suspect]
     Indication: IMMUNISATION
     Dosage: (1 DOSAGE FORMS) INJECTION
  3. PNEUMONIA SHOT [Suspect]
     Indication: IMMUNISATION
     Dosage: (1 DOSAGE FORMS), INJECTION
  4. PEGINTERFERON ALFA-2A [Concomitant]
  5. BOCEPREVIR [Concomitant]
  6. RIBAVIRIN [Concomitant]
  7. METHYLPHENIDATE [Concomitant]
  8. MODAFINIL [Concomitant]
  9. ARIPIPRAZOLE [Concomitant]
  10. TOPIRAMATE [Concomitant]

REACTIONS (4)
  - Cellulitis [None]
  - Muscle spasms [None]
  - Diarrhoea [None]
  - Weight decreased [None]
